FAERS Safety Report 13192295 (Version 2)
Quarter: 2017Q1

REPORT INFORMATION
  Report Type: Spontaneous
  Country: US (occurrence: US)
  Receive Date: 20170207
  Receipt Date: 20170220
  Transmission Date: 20170428
  Serious: Yes (Death, Hospitalization)
  Sender: FDA-Public Use
  Company Number: US-UNITED THERAPEUTICS-UNT-2017-000070

PATIENT
  Age: 83 Year
  Sex: Male
  Weight: 80.73 kg

DRUGS (5)
  1. TYVASO [Suspect]
     Active Substance: TREPROSTINIL
     Dosage: 18-72 ?G, QID
  2. TYVASO [Suspect]
     Active Substance: TREPROSTINIL
     Indication: PULMONARY ARTERIAL HYPERTENSION
     Dosage: 18-54 ?G, QID
     Dates: start: 20130110
  3. REVATIO [Concomitant]
     Active Substance: SILDENAFIL CITRATE
     Indication: PRODUCT USED FOR UNKNOWN INDICATION
  4. LETAIRIS [Concomitant]
     Active Substance: AMBRISENTAN
     Indication: PRODUCT USED FOR UNKNOWN INDICATION
  5. TYVASO [Suspect]
     Active Substance: TREPROSTINIL
     Dosage: 90 ?G, QID

REACTIONS (10)
  - Gastrointestinal haemorrhage [Unknown]
  - Upper respiratory tract infection [Unknown]
  - Drug dose omission [Unknown]
  - Off label use [Unknown]
  - Death [Fatal]
  - Dyspnoea [Unknown]
  - Pneumonia [Unknown]
  - Cough [Unknown]
  - Oral candidiasis [Unknown]
  - Asthenia [Unknown]

NARRATIVE: CASE EVENT DATE: 20161130
